FAERS Safety Report 5366933-7 (Version None)
Quarter: 2007Q2

REPORT INFORMATION
  Report Type: 
  Country: None (occurrence: None)
  Receive Date: 20070622
  Receipt Date: 20070216
  Transmission Date: 20071010
  Serious: No
  Sender: FDA-Public Use
  Company Number: US-ASTRAZENECA-2007UW03111

PATIENT
  Age: 79 Year
  Sex: Female
  Weight: 63.5 kg

DRUGS (11)
  1. RHINOCORT [Suspect]
     Indication: HEADACHE
     Route: 045
     Dates: start: 20070214
  2. RHINOCORT [Suspect]
     Indication: SNEEZING
     Route: 045
     Dates: start: 20070214
  3. PROTONIX [Concomitant]
  4. TRIAMTERENE AND HYDROCHLOROTHIAZIDE [Concomitant]
  5. BETAXOLOL [Concomitant]
  6. LISINOPRIL [Concomitant]
  7. ECOTRIN [Concomitant]
  8. ASCORBIC ACID [Concomitant]
  9. VITAMIN E B12 [Concomitant]
  10. CENTRUM SILVER [Concomitant]
  11. CORICIDIN HB [Concomitant]

REACTIONS (1)
  - VAGINAL HAEMORRHAGE [None]
